FAERS Safety Report 10952076 (Version 1)
Quarter: 2015Q1

REPORT INFORMATION
  Report Type: Spontaneous
  Country: US (occurrence: None)
  Receive Date: 20150324
  Receipt Date: 20150324
  Transmission Date: 20150721
  Serious: Yes (Hospitalization)
  Sender: FDA-Public Use
  Company Number: None

PATIENT
  Age: 79 Year
  Sex: Male
  Weight: 100 kg

DRUGS (2)
  1. ZOMETA [Concomitant]
     Active Substance: ZOLEDRONIC ACID
  2. ZOMETA [Suspect]
     Active Substance: ZOLEDRONIC ACID
     Indication: HYPERCALCAEMIA OF MALIGNANCY
     Route: 042

REACTIONS (10)
  - Blood creatinine increased [None]
  - Hypovolaemia [None]
  - Asthenia [None]
  - Blood urea increased [None]
  - Dysstasia [None]
  - Renal impairment [None]
  - Fatigue [None]
  - Chills [None]
  - Fall [None]
  - Blood sodium increased [None]

NARRATIVE: CASE EVENT DATE: 20140514
